FAERS Safety Report 20868266 (Version 1)
Quarter: 2022Q2

REPORT INFORMATION
  Report Type: Spontaneous
  Country: JP (occurrence: JP)
  Receive Date: 20220524
  Receipt Date: 20220524
  Transmission Date: 20220721
  Serious: Yes (Other)
  Sender: FDA-Public Use
  Company Number: JP-ORGANON-O2205JPN000230J

PATIENT
  Age: 62 Year
  Sex: Female

DRUGS (1)
  1. ZETIA [Suspect]
     Active Substance: EZETIMIBE
     Dosage: 10 MILLIGRAM, QD
     Route: 048

REACTIONS (7)
  - Neoplasm malignant [Unknown]
  - Hepatic steatosis [Unknown]
  - Pustule [Unknown]
  - Large intestine polyp [Unknown]
  - Blood albumin decreased [Unknown]
  - Muscle disorder [Unknown]
  - Liver function test increased [Unknown]
